FAERS Safety Report 13942327 (Version 4)
Quarter: 2018Q3

REPORT INFORMATION
  Report Type: Report from Study
  Country: US (occurrence: US)
  Receive Date: 20170907
  Receipt Date: 20180910
  Transmission Date: 20181010
  Serious: Yes (Hospitalization, Other)
  Sender: FDA-Public Use
  Company Number: US-SA-2017SA163918

PATIENT
  Age: 43 Year
  Sex: Female

DRUGS (6)
  1. GLICLAZIDE [Concomitant]
     Active Substance: GLICLAZIDE
     Indication: PREMEDICATION
     Dosage: UNK UNK,BID
     Route: 065
     Dates: start: 20170804
  2. ALEMTUZUMAB [Suspect]
     Active Substance: ALEMTUZUMAB
     Indication: MULTIPLE SCLEROSIS
     Dosage: 12 MG,QD
     Route: 041
     Dates: start: 20170807, end: 20170808
  3. ALEMTUZUMAB [Suspect]
     Active Substance: ALEMTUZUMAB
     Dosage: 12 MG,QD
     Route: 041
     Dates: start: 20170823, end: 20170824
  4. ALEMTUZUMAB [Suspect]
     Active Substance: ALEMTUZUMAB
     Dosage: 12 MG,QD
     Route: 041
     Dates: start: 20170828, end: 20170828
  5. ZANTAC [Concomitant]
     Active Substance: RANITIDINE HYDROCHLORIDE
     Indication: PREMEDICATION
     Dosage: UNK UNK,BID
     Route: 065
     Dates: start: 20170804
  6. ZOVIRAX [ACICLOVIR] [Concomitant]
     Indication: PREMEDICATION
     Dosage: UNK UNK,BID
     Route: 065
     Dates: start: 20170804

REACTIONS (15)
  - Feeling abnormal [Recovered/Resolved]
  - Arthralgia [Not Recovered/Not Resolved]
  - Blood pressure increased [Recovering/Resolving]
  - Multiple sclerosis relapse [Not Recovered/Not Resolved]
  - Pulmonary oedema [Recovered/Resolved]
  - Dyspnoea [Recovered/Resolved]
  - Cough [Recovered/Resolved]
  - Palpitations [Recovered/Resolved]
  - Pneumonia [Recovered/Resolved]
  - Facial pain [Not Recovered/Not Resolved]
  - Hypersensitivity [Recovered/Resolved]
  - Burning sensation [Not Recovered/Not Resolved]
  - Chest discomfort [Recovered/Resolved]
  - Dyspnoea exertional [Recovered/Resolved]
  - Myalgia [Not Recovered/Not Resolved]

NARRATIVE: CASE EVENT DATE: 20170808
